FAERS Safety Report 5033850-1 (Version None)
Quarter: 2006Q2

REPORT INFORMATION
  Report Type: 
  Country: None (occurrence: None)
  Receive Date: 20060620
  Receipt Date: 20060601
  Transmission Date: 20061013
  Serious: Yes (Hospitalization)
  Sender: FDA-Public Use
  Company Number: AU200606002095

PATIENT
  Age: 44 Year
  Sex: Female

DRUGS (4)
  1. FLUOXETINE [Suspect]
     Indication: DEPRESSION
     Dosage: 40 MG, DAILY (1/D)
     Dates: start: 20060401, end: 20060101
  2. VALIUM /NET/ (DIAZEPAM) [Concomitant]
  3. PONSTAN (CAN/ (MEFENAMIC ACID) [Concomitant]
  4. LEVLEN (ETHINYLESTRADIOL, LEVONORGESTREL) [Concomitant]

REACTIONS (8)
  - ASTHENIA [None]
  - BEDRIDDEN [None]
  - FATIGUE [None]
  - GENERAL PHYSICAL HEALTH DETERIORATION [None]
  - HYPERHIDROSIS [None]
  - HYPOVENTILATION [None]
  - ORAL INTAKE REDUCED [None]
  - PARAESTHESIA [None]
